FAERS Safety Report 5087603-9 (Version None)
Quarter: 2006Q3

REPORT INFORMATION
  Report Type: 
  Country: None (occurrence: None)
  Receive Date: 20060727
  Receipt Date: 20060403
  Transmission Date: 20061208
  Serious: Yes (Other)
  Sender: FDA-Public Use
  Company Number: 2006048109

PATIENT
  Age: 29 Year
  Sex: Male
  Weight: 163.2949 kg

DRUGS (5)
  1. LYRICA [Suspect]
     Indication: NEURALGIA
     Dosage: 300 MG (150 MG, 2 IN 1 D), UNKNOWN
     Dates: start: 20060321, end: 20060403
  2. AVANDIA [Concomitant]
  3. ANTIDEPRESSANTS (ANTIDEPRESSANTS) [Concomitant]
  4. MUSCLE RELAXANTS (MUSCLE RELAXANTS) [Concomitant]
  5. ACTOS [Concomitant]

REACTIONS (2)
  - OEDEMA [None]
  - PAIN IN EXTREMITY [None]
